FAERS Safety Report 9539271 (Version 1)
Quarter: 2013Q2

REPORT INFORMATION
  Report Type: Spontaneous
  Country: US (occurrence: None)
  Receive Date: 20130521
  Receipt Date: 20130521
  Transmission Date: 20140414
  Serious: No
  Sender: FDA-Public Use
  Company Number: 1000043603

PATIENT
  Sex: Male

DRUGS (2)
  1. TUDORZA PRESSAIR (ACLIDINIUM BROMIDE) (400 MICROGRAM, POWDER) [Suspect]
     Dates: start: 20130319
  2. AMPHETAMINE (AMFETAMINE) (AMFETAMINE) [Suspect]
     Dates: start: 20130319

REACTIONS (2)
  - Lethargy [None]
  - Confusional state [None]
